FAERS Safety Report 6491423-8 (Version None)
Quarter: 2009Q4

REPORT INFORMATION
  Report Type: 
  Country: None (occurrence: None)
  Receive Date: 20091211
  Receipt Date: 20091207
  Transmission Date: 20100525
  Serious: Yes (Life-Threatening)
  Sender: FDA-Public Use
  Company Number: US-CELGENEUS-163-21880-09110651

PATIENT
  Sex: Male

DRUGS (1)
  1. REVLIMID [Suspect]
     Indication: MYELOFIBROSIS
     Route: 048
     Dates: start: 20090801

REACTIONS (1)
  - PLATELET COUNT DECREASED [None]
